FAERS Safety Report 17172345 (Version 3)
Quarter: 2021Q2

REPORT INFORMATION
  Report Type: Report from Study
  Country: NO (occurrence: NO)
  Receive Date: 20191219
  Receipt Date: 20210607
  Transmission Date: 20210716
  Serious: Yes (Hospitalization)
  Sender: FDA-Public Use
  Company Number: NO-SA-2016SA173954

PATIENT
  Age: 45 Year
  Sex: Male

DRUGS (2)
  1. ALEMTUZUMAB [Suspect]
     Active Substance: ALEMTUZUMAB
     Indication: RELAPSING MULTIPLE SCLEROSIS
     Dosage: 12 MG,QD
     Route: 041
     Dates: start: 20160330, end: 20160401
  2. ALEMTUZUMAB [Suspect]
     Active Substance: ALEMTUZUMAB
     Dosage: 12 MG,QD
     Route: 041
     Dates: start: 20150323, end: 20150327

REACTIONS (6)
  - Myositis [Recovering/Resolving]
  - Herpes zoster [Recovered/Resolved with Sequelae]
  - Sinusitis [Recovered/Resolved]
  - Pharyngitis [Recovered/Resolved]
  - Intervertebral disc protrusion [Recovering/Resolving]
  - Post herpetic neuralgia [Not Recovered/Not Resolved]

NARRATIVE: CASE EVENT DATE: 20160809
